FAERS Safety Report 4320092-8 (Version None)
Quarter: 2004Q1

REPORT INFORMATION
  Report Type: 
  Country: None (occurrence: None)
  Receive Date: 20040317
  Receipt Date: 20040311
  Transmission Date: 20041129
  Serious: Yes (Other)
  Sender: FDA-Public Use
  Company Number: 200415399BWH

PATIENT
  Age: 62 Year
  Sex: Male

DRUGS (1)
  1. TRASYLOL [Suspect]
     Dosage: INTRAVENOUS
     Route: 042
     Dates: start: 20040301

REACTIONS (4)
  - BLINDNESS TRANSIENT [None]
  - INFARCTION [None]
  - VASCULAR GRAFT OCCLUSION [None]
  - VESTIBULAR DISORDER [None]
